FAERS Safety Report 24077309 (Version 1)
Quarter: 2024Q3

REPORT INFORMATION
  Report Type: Spontaneous
  Country: US (occurrence: US)
  Receive Date: 20240711
  Receipt Date: 20240711
  Transmission Date: 20241016
  Serious: No
  Sender: JOHNSON AND JOHNSON
  Company Number: US-JNJFOC-20240656555

PATIENT
  Age: 4 Decade
  Sex: Female

DRUGS (3)
  1. ZYRTEC [Suspect]
     Active Substance: CETIRIZINE HYDROCHLORIDE
     Indication: Premedication
     Route: 065
  2. AGALSIDASE BETA [Concomitant]
     Active Substance: AGALSIDASE BETA
     Indication: Fabry^s disease
     Dosage: EVERY OTHER WEEK
     Route: 042
     Dates: start: 20231113
  3. BENADRYL [Concomitant]
     Active Substance: DIPHENHYDRAMINE HYDROCHLORIDE
     Indication: Premedication
     Route: 065
     Dates: start: 202311

REACTIONS (2)
  - Fatigue [Recovering/Resolving]
  - Off label use [Unknown]
